FAERS Safety Report 4289215-3 (Version None)
Quarter: 2004Q1

REPORT INFORMATION
  Report Type: 
  Country: None (occurrence: None)
  Receive Date: 20040205
  Receipt Date: 20021112
  Transmission Date: 20041129
  Serious: Yes (Death)
  Sender: FDA-Public Use
  Company Number: CEL-2002-01515-ROC

PATIENT
  Age: 37 Year
  Sex: Male

DRUGS (1)
  1. TUSSIONEX ER SUSPENSION [Suspect]

REACTIONS (1)
  - DEATH [None]
